FAERS Safety Report 16135751 (Version 1)
Quarter: 2019Q1

REPORT INFORMATION
  Report Type: Spontaneous
  Country: MX (occurrence: MX)
  Receive Date: 20190329
  Receipt Date: 20190329
  Transmission Date: 20190418
  Serious: Yes (Other)
  Sender: FDA-Public Use
  Company Number: MX-PFIZER INC-2019136954

PATIENT
  Sex: Female

DRUGS (1)
  1. SUTENT [Suspect]
     Active Substance: SUNITINIB MALATE
     Indication: RENAL CANCER METASTATIC
     Dosage: UNK
     Dates: start: 2012

REACTIONS (4)
  - Peripheral swelling [Unknown]
  - Blood urine present [Unknown]
  - Dysuria [Unknown]
  - Thrombosis [Unknown]

NARRATIVE: CASE EVENT DATE: 201902
